FAERS Safety Report 23492702 (Version 1)
Quarter: 2024Q1

REPORT INFORMATION
  Report Type: Spontaneous
  Country: US (occurrence: None)
  Receive Date: 20240207
  Receipt Date: 20240207
  Transmission Date: 20240410
  Serious: Yes (Other)
  Sender: FDA-Public Use
  Company Number: 2024A028208

PATIENT
  Age: 32 Year
  Sex: Female

DRUGS (9)
  1. ROSUVASTATIN [Suspect]
     Active Substance: ROSUVASTATIN
     Indication: Myopathy
  2. LUPKYNIS [Suspect]
     Active Substance: VOCLOSPORIN
     Route: 048
     Dates: start: 20220401
  3. LUPKYNIS [Suspect]
     Active Substance: VOCLOSPORIN
     Route: 048
     Dates: start: 20230128
  4. LUPKYNIS [Suspect]
     Active Substance: VOCLOSPORIN
     Route: 048
     Dates: start: 20230128
  5. BENLYSTA [Concomitant]
     Active Substance: BELIMUMAB
  6. AZATHIOPRINE [Concomitant]
     Active Substance: AZATHIOPRINE
  7. CARVEDILOL [Concomitant]
     Active Substance: CARVEDILOL
  8. CHLORTHALIDONE [Concomitant]
     Active Substance: CHLORTHALIDONE
  9. UNSPECIFIED INGREDIENT [Concomitant]
     Active Substance: UNSPECIFIED INGREDIENT

REACTIONS (8)
  - Urine albumin/creatinine ratio increased [Unknown]
  - Osteonecrosis [Unknown]
  - Bronchitis [Unknown]
  - Blood creatinine increased [Unknown]
  - Hypertension [Unknown]
  - Myopathy [Unknown]
  - Fatigue [Unknown]
  - Proteinuria [Unknown]

NARRATIVE: CASE EVENT DATE: 20230531
